FAERS Safety Report 8545780-9 (Version None)
Quarter: 2012Q3

REPORT INFORMATION
  Report Type: 
  Country: None (occurrence: None)
  Receive Date: 20120727
  Receipt Date: 20120723
  Transmission Date: 20120928
  Serious: Yes (Hospitalization, Other)
  Sender: FDA-Public Use
  Company Number: US-009507513-1207USA010329

PATIENT

DRUGS (7)
  1. VALPROIC ACID [Concomitant]
  2. FLORINEF [Concomitant]
  3. JANUVIA [Suspect]
     Route: 048
  4. DIAMICRON MR [Suspect]
  5. FLUTICASONE PROPIONATE/SALMETEROL [Concomitant]
     Route: 045
  6. LOPRAZ [Concomitant]
  7. REBIF [Suspect]
     Route: 058

REACTIONS (7)
  - CHILLS [None]
  - LOWER RESPIRATORY TRACT INFECTION [None]
  - HEADACHE [None]
  - SYNCOPE [None]
  - TREATMENT NONCOMPLIANCE [None]
  - FEELING COLD [None]
  - COUGH [None]
